FAERS Safety Report 4464852-1 (Version None)
Quarter: 2004Q4

REPORT INFORMATION
  Report Type: 
  Country: None (occurrence: None)
  Receive Date: 20041004
  Receipt Date: 20031117
  Transmission Date: 20050328
  Serious: No
  Sender: FDA-Public Use
  Company Number: 354401

PATIENT

DRUGS (3)
  1. COREG [Suspect]
     Indication: ILL-DEFINED DISORDER
     Route: 065
  2. ANGIOTENSIN II [Concomitant]
  3. CALCIUM CHANNEL BLOCKER [Concomitant]

REACTIONS (1)
  - HYPERTENSION [None]
